FAERS Safety Report 20677228 (Version 1)
Quarter: 2022Q2

REPORT INFORMATION
  Report Type: Spontaneous
  Country: RU (occurrence: RU)
  Receive Date: 20220406
  Receipt Date: 20220406
  Transmission Date: 20220721
  Serious: Yes (Hospitalization, Other)
  Sender: FDA-Public Use
  Company Number: RU-SA-2022SA114397

PATIENT
  Age: 73 Year
  Sex: Female
  Weight: 65 kg

DRUGS (5)
  1. TELMISARTAN [Suspect]
     Active Substance: TELMISARTAN
     Indication: Accident at home
     Dosage: UNK UNK, TOTAL
     Route: 048
     Dates: start: 20220321, end: 20220321
  2. CAPTOPRIL [Suspect]
     Active Substance: CAPTOPRIL
     Indication: Accident at home
     Dosage: UNK UNK, TOTAL
     Route: 048
     Dates: start: 20220321, end: 20220321
  3. DOXYLAMINE SUCCINATE [Suspect]
     Active Substance: DOXYLAMINE SUCCINATE
     Indication: Accident at home
     Dosage: UNK UNK, TOTAL
     Route: 048
     Dates: start: 20220321, end: 20220321
  4. ISOSORBIDE DINITRATE [Suspect]
     Active Substance: ISOSORBIDE DINITRATE
     Indication: Accident at home
     Dosage: UNK UNK, TOTAL
     Route: 048
     Dates: start: 20220321, end: 20220321
  5. AMITRIPTYLINE [Concomitant]
     Active Substance: AMITRIPTYLINE
     Indication: Mental disorder
     Dosage: UNK

REACTIONS (3)
  - Enzyme inhibition [Recovered/Resolved]
  - Blood pressure decreased [Recovered/Resolved]
  - Bradycardia [Recovered/Resolved]

NARRATIVE: CASE EVENT DATE: 20220321
